FAERS Safety Report 4470728-6 (Version None)
Quarter: 2004Q4

REPORT INFORMATION
  Report Type: 
  Country: None (occurrence: None)
  Receive Date: 20041006
  Receipt Date: 20040923
  Transmission Date: 20050328
  Serious: No
  Sender: FDA-Public Use
  Company Number: 2004UW19866

PATIENT
  Age: 84 Year
  Sex: Male

DRUGS (8)
  1. CASODEX [Suspect]
     Dosage: 50 MG DAILY PO
     Route: 048
  2. ATENOLOL [Concomitant]
  3. CENTRUM FORTE [Concomitant]
  4. COUMADIN [Concomitant]
  5. FERROUS SULFATE TAB [Concomitant]
  6. HYDROCHLOROTHIAZIDE [Concomitant]
  7. OXAZEPAM [Concomitant]
  8. OXYBUTYNIN [Concomitant]

REACTIONS (3)
  - DIARRHOEA [None]
  - PROCTITIS [None]
  - STOOLS WATERY [None]
